FAERS Safety Report 18709766 (Version 1)
Quarter: 2021Q1

REPORT INFORMATION
  Report Type: Spontaneous
  Country: US (occurrence: US)
  Receive Date: 20210107
  Receipt Date: 20210107
  Transmission Date: 20210419
  Serious: No
  Sender: FDA-Public Use
  Company Number: US-JNJFOC-20201237641

PATIENT
  Age: 84 Year
  Sex: Female
  Weight: 59.02 kg

DRUGS (2)
  1. METOPROLOL. [Concomitant]
     Active Substance: METOPROLOL
     Indication: CARDIAC DISORDER
     Route: 065
  2. WOMENS ROGAINE [Suspect]
     Active Substance: MINOXIDIL
     Indication: ALOPECIA
     Dosage: DOSE: AS RECOMMENDED IN THE PACKAGE
     Route: 061
     Dates: start: 20201203, end: 20201216

REACTIONS (5)
  - Application site pain [Not Recovered/Not Resolved]
  - Alopecia [Unknown]
  - Application site irritation [Recovered/Resolved]
  - Inappropriate schedule of product administration [Unknown]
  - Underdose [Unknown]

NARRATIVE: CASE EVENT DATE: 20201203
